FAERS Safety Report 23847262 (Version 1)
Quarter: 2024Q2

REPORT INFORMATION
  Report Type: Other
  Country: JP (occurrence: JP)
  Receive Date: 20240513
  Receipt Date: 20240513
  Transmission Date: 20240716
  Serious: Yes (Hospitalization, Other)
  Sender: FDA-Public Use
  Company Number: JP-Bion-013038

PATIENT
  Age: 60 Year
  Sex: Male

DRUGS (1)
  1. VALPROIC ACID [Suspect]
     Active Substance: VALPROIC ACID
     Indication: Epilepsy
     Route: 048

REACTIONS (4)
  - Foreign body aspiration [Unknown]
  - Respiratory failure [Recovering/Resolving]
  - Atelectasis [Recovered/Resolved]
  - Sputum increased [Recovering/Resolving]
